FAERS Safety Report 23935747 (Version 1)
Quarter: 2024Q2

REPORT INFORMATION
  Report Type: Spontaneous
  Country: CN (occurrence: CN)
  Receive Date: 20240604
  Receipt Date: 20240604
  Transmission Date: 20240716
  Serious: Yes (Life-Threatening)
  Sender: FDA-Public Use
  Company Number: CN-ROCHE-3575001

PATIENT
  Age: 63 Year
  Sex: Male

DRUGS (3)
  1. XELODA [Suspect]
     Active Substance: CAPECITABINE
     Indication: Colon neoplasm
     Dosage: BID; APPROVAL NO. GYZZ H20073024
     Route: 065
     Dates: start: 20240515
  2. BEVACIZUMAB [Suspect]
     Active Substance: BEVACIZUMAB
     Indication: Colon neoplasm
     Dosage: APPROVAL NO. GYZZ SJ20170035 ; INTRAVENOUS DRIP
     Route: 041
     Dates: start: 20240514, end: 20240514
  3. OXALIPLATIN [Suspect]
     Active Substance: OXALIPLATIN
     Indication: Colon neoplasm
     Dosage: INTRAVENOUS DRIP; APPROVAL NO. GYZZ J20150117
     Route: 041
     Dates: start: 20240515, end: 20240515

REACTIONS (1)
  - Myelosuppression [Recovering/Resolving]

NARRATIVE: CASE EVENT DATE: 20240517
